FAERS Safety Report 23421186 (Version 2)
Quarter: 2024Q1

REPORT INFORMATION
  Report Type: Spontaneous
  Country: SI (occurrence: None)
  Receive Date: 20240119
  Receipt Date: 20240123
  Transmission Date: 20240410
  Serious: Yes (Death, Hospitalization)
  Sender: FDA-Public Use
  Company Number: SI-ROCHE-3493770

PATIENT
  Age: 48 Year
  Sex: Female

DRUGS (1)
  1. PRALSETINIB [Suspect]
     Active Substance: PRALSETINIB
     Indication: Colitis ulcerative
     Route: 048

REACTIONS (5)
  - Disease progression [Fatal]
  - Embolism [Unknown]
  - Cardiac arrest [Unknown]
  - Lymphadenopathy mediastinal [Unknown]
  - Peripheral ischaemia [Unknown]
